FAERS Safety Report 9187465 (Version 3)
Quarter: 2014Q1

REPORT INFORMATION
  Report Type: Spontaneous
  Country: BE (occurrence: BE)
  Receive Date: 20130325
  Receipt Date: 20140121
  Transmission Date: 20141002
  Serious: Yes (Other)
  Sender: FDA-Public Use
  Company Number: BE-BRISTOL-MYERS SQUIBB COMPANY-17450651

PATIENT
  Age: 64 Year
  Sex: Male
  Weight: 72 kg

DRUGS (9)
  1. YERVOY [Suspect]
     Indication: METASTATIC MALIGNANT MELANOMA
     Dates: start: 20130206
  2. SIMVASTATIN [Concomitant]
     Dosage: SIMVASTATIN 20
  3. CO-LISINOPRIL [Concomitant]
     Dosage: CO-LISINOPRIL 1/2 12.5: ON HOLD
  4. CARDIOASPIRIN [Concomitant]
  5. FOLIC ACID [Concomitant]
  6. BISOPROLOL [Concomitant]
     Dosage: BISOPROLOL 5
  7. PANTOMED [Concomitant]
  8. MEDROL [Concomitant]
  9. LITICAN [Concomitant]

REACTIONS (9)
  - Malignant neoplasm progression [Unknown]
  - Diarrhoea [Recovering/Resolving]
  - Renal failure [Recovering/Resolving]
  - Abdominal discomfort [Recovered/Resolved]
  - Decreased appetite [Recovered/Resolved]
  - Monoparesis [Recovered/Resolved]
  - Large intestinal ulcer [Unknown]
  - Orthostatic hypotension [Unknown]
  - Blood magnesium decreased [Unknown]
